FAERS Safety Report 17132095 (Version 4)
Quarter: 2021Q4

REPORT INFORMATION
  Report Type: Report from Study
  Country: US (occurrence: US)
  Receive Date: 20191210
  Receipt Date: 20211204
  Transmission Date: 20220303
  Serious: No
  Sender: FDA-Public Use
  Company Number: NVSC2019US062594

PATIENT
  Age: 6 Year
  Sex: Male

DRUGS (2)
  1. ILARIS [Suspect]
     Active Substance: CANAKINUMAB
     Indication: Juvenile idiopathic arthritis
     Dosage: 80 MG, Q4W
     Route: 058
     Dates: start: 20191108
  2. ILARIS [Suspect]
     Active Substance: CANAKINUMAB
     Dosage: 120 MG, Q4W
     Route: 058
     Dates: start: 2019

REACTIONS (2)
  - Pyrexia [Unknown]
  - Inappropriate schedule of product administration [Unknown]

NARRATIVE: CASE EVENT DATE: 20210806
